FAERS Safety Report 10648845 (Version 1)
Quarter: 2014Q4

REPORT INFORMATION
  Report Type: Spontaneous
  Country: DE (occurrence: DE)
  Receive Date: 20141212
  Receipt Date: 20141212
  Transmission Date: 20150529
  Serious: Yes (Disabling)
  Sender: FDA-Public Use
  Company Number: DE-ASTRAZENECA-2014SE94182

PATIENT
  Age: 619 Month
  Sex: Female
  Weight: 62 kg

DRUGS (1)
  1. SEROQUEL [Suspect]
     Active Substance: QUETIAPINE FUMARATE
     Indication: SLEEP DISORDER
     Route: 048
     Dates: start: 20141115, end: 20141115

REACTIONS (10)
  - Syncope [Not Recovered/Not Resolved]
  - Dissociation [Not Recovered/Not Resolved]
  - Dizziness [Not Recovered/Not Resolved]
  - Product use issue [Unknown]
  - Swelling face [Not Recovered/Not Resolved]
  - Loss of consciousness [Not Recovered/Not Resolved]
  - Unevaluable event [Not Recovered/Not Resolved]
  - Wound complication [Not Recovered/Not Resolved]
  - Fall [Not Recovered/Not Resolved]
  - Local swelling [Not Recovered/Not Resolved]

NARRATIVE: CASE EVENT DATE: 201411
